FAERS Safety Report 8264687-8 (Version None)
Quarter: 2012Q2

REPORT INFORMATION
  Report Type: 
  Country: None (occurrence: None)
  Receive Date: 20120403
  Receipt Date: 20120329
  Transmission Date: 20120825
  Serious: Yes (Death)
  Sender: FDA-Public Use
  Company Number: ADR-2012-00625

PATIENT
  Age: 62 Year
  Sex: Male

DRUGS (5)
  1. MORPHINE [Concomitant]
  2. MARCAINE [Concomitant]
  3. CLONIDINE [Concomitant]
  4. BACLOFEN [Suspect]
     Indication: PAIN
     Dosage: 200 MCG
  5. BACLOFEN [Suspect]
     Indication: BACK PAIN
     Dosage: 200 MCG

REACTIONS (1)
  - PULMONARY EMBOLISM [None]
